FAERS Safety Report 15977997 (Version 5)
Quarter: 2019Q3

REPORT INFORMATION
  Report Type: Spontaneous
  Country: US (occurrence: US)
  Receive Date: 20190218
  Receipt Date: 20190806
  Transmission Date: 20191004
  Serious: No
  Sender: FDA-Public Use
  Company Number: US-SA-2019SA041782

PATIENT
  Age: 45 Year
  Sex: Female

DRUGS (6)
  1. LEFLUNOMIDE. [Suspect]
     Active Substance: LEFLUNOMIDE
     Dosage: UNK
     Dates: start: 201709, end: 201901
  2. DUPIXENT [Suspect]
     Active Substance: DUPILUMAB
     Indication: ECZEMA
     Dosage: 300 MG, QOW
     Route: 058
     Dates: start: 20181001, end: 20190412
  3. REMICADE [Suspect]
     Active Substance: INFLIXIMAB
     Dosage: UNK
     Dates: start: 20190524
  4. COLCHICINE. [Concomitant]
     Active Substance: COLCHICINE
  5. DUPIXENT [Suspect]
     Active Substance: DUPILUMAB
     Indication: DERMATITIS ALLERGIC
     Dosage: 300 MG, QOW
     Route: 058
  6. XELJANZ [Suspect]
     Active Substance: TOFACITINIB CITRATE
     Dosage: UNK
     Dates: start: 20190723

REACTIONS (12)
  - Pruritus [Not Recovered/Not Resolved]
  - Erythema [Recovering/Resolving]
  - Pancreatic disorder [Not Recovered/Not Resolved]
  - Swelling face [Recovering/Resolving]
  - Rash [Recovering/Resolving]
  - Cough [Not Recovered/Not Resolved]
  - Depression [Not Recovered/Not Resolved]
  - Dyspepsia [Not Recovered/Not Resolved]
  - Arthralgia [Not Recovered/Not Resolved]
  - Rash [Recovering/Resolving]
  - Fatigue [Not Recovered/Not Resolved]
  - Feeling hot [Recovering/Resolving]

NARRATIVE: CASE EVENT DATE: 20181001
